FAERS Safety Report 6733564-3 (Version None)
Quarter: 2010Q2

REPORT INFORMATION
  Report Type: 
  Country: None (occurrence: None)
  Receive Date: 20100512
  Receipt Date: 20100512
  Transmission Date: 20101027
  Serious: Yes (Other)
  Sender: FDA-Public Use
  Company Number: None

PATIENT
  Age: 54 Year
  Sex: Female
  Weight: 49.4421 kg

DRUGS (2)
  1. BACTRIM [Suspect]
     Indication: INFECTION
     Dosage: 1 TAB EVERY 12 HRS BY MOUTH
     Dates: start: 20100402, end: 20100409
  2. KEFLEX [Suspect]
     Indication: INFECTION
     Dosage: 1 TAB 12 HRS BY MOUTH
     Dates: start: 20100402, end: 20100409

REACTIONS (12)
  - CHILLS [None]
  - DYSPNOEA [None]
  - FATIGUE [None]
  - HYPOAESTHESIA [None]
  - LOSS OF CONSCIOUSNESS [None]
  - OEDEMA PERIPHERAL [None]
  - PAIN IN EXTREMITY [None]
  - PRURITUS [None]
  - PYREXIA [None]
  - RASH [None]
  - SKIN EXFOLIATION [None]
  - STOMATITIS [None]
